FAERS Safety Report 16651124 (Version 1)
Quarter: 2019Q3

REPORT INFORMATION
  Report Type: Spontaneous
  Country: US (occurrence: US)
  Receive Date: 20190731
  Receipt Date: 20190731
  Transmission Date: 20191004
  Serious: Yes (Other)
  Sender: FDA-Public Use
  Company Number: US-DRREDDYS-USA/USA/19/0112584

PATIENT
  Age: 21 Year
  Sex: Male

DRUGS (2)
  1. MELPHALAN HYDROCHLORIDE FOR INJECTION [Suspect]
     Active Substance: MELPHALAN HYDROCHLORIDE
     Indication: GERM CELL CANCER
     Dosage: OVER THE NEXT 8 MONTHS
     Route: 013
  2. CARBOPLATIN. [Suspect]
     Active Substance: CARBOPLATIN
     Indication: GERM CELL CANCER
     Dosage: OVER 8 MONTHS
     Route: 013

REACTIONS (5)
  - Anaemia [Unknown]
  - Thrombocytopenia [Unknown]
  - Visual acuity reduced [Unknown]
  - Hallucination, visual [Unknown]
  - Fatigue [Unknown]
